FAERS Safety Report 7333368-7 (Version None)
Quarter: 2011Q1

REPORT INFORMATION
  Report Type: 
  Country: None (occurrence: None)
  Receive Date: 20110304
  Receipt Date: 20110215
  Transmission Date: 20110831
  Serious: Yes (Hospitalization, Other)
  Sender: FDA-Public Use
  Company Number: CA-BAYER-2011-012987

PATIENT
  Sex: Male
  Weight: 100 kg

DRUGS (7)
  1. XARELTO [Suspect]
     Indication: THROMBOSIS PROPHYLAXIS
     Dosage: DAILY DOSE 10 MG
     Route: 048
     Dates: start: 20110206, end: 20110206
  2. CLOPIDOGREL [Suspect]
     Dosage: DAILY DOSE 75 MG
     Route: 048
     Dates: start: 20110201, end: 20110206
  3. NORVASK [Concomitant]
     Dosage: DAILY DOSE 50 MG
     Route: 048
  4. LIPITOR [Concomitant]
     Dosage: DAILY DOSE 10 MG
     Route: 048
  5. ASPIRIN [Suspect]
     Dosage: DAILY DOSE 81 MG
     Route: 048
     Dates: start: 20110201, end: 20110206
  6. XARELTO [Suspect]
     Indication: KNEE ARTHROPLASTY
     Dosage: DAILY DOSE 10 MG
     Route: 048
     Dates: start: 20110201, end: 20110203
  7. UNCODEABLE ^UNCLASSIFIABLE^ [Concomitant]
     Dosage: DAILY DOSE 16 MG
     Route: 048

REACTIONS (3)
  - POSTOPERATIVE ILEUS [None]
  - GASTROINTESTINAL HAEMORRHAGE [None]
  - BLOOD CREATININE INCREASED [None]
